FAERS Safety Report 9920178 (Version 1)
Quarter: 2014Q1

REPORT INFORMATION
  Report Type: Spontaneous
  Country: SG (occurrence: SG)
  Receive Date: 20140224
  Receipt Date: 20140224
  Transmission Date: 20141002
  Serious: Yes (Other)
  Sender: FDA-Public Use
  Company Number: ALCN2014SG001288

PATIENT
  Age: 6 Year
  Sex: Male

DRUGS (6)
  1. TROPICAMIDE [Suspect]
     Indication: OPHTHALMOLOGICAL EXAMINATION
     Dosage: 1 DRP, ONCE/SINGLE
     Route: 047
  2. PHENYLEPHRINE HCL [Suspect]
     Indication: OPHTHALMOLOGICAL EXAMINATION
     Dosage: 1 DRP, ONCE/SINGLE
     Route: 047
  3. CYCLOPENTOLATE HCL [Suspect]
     Indication: OPHTHALMOLOGICAL EXAMINATION
     Dosage: 1 DRP, ONCE/SINGLE
     Route: 047
  4. CYCLOPENTOLATE HCL [Suspect]
     Dosage: 1 DRP, ONCE/SINGLE
     Route: 047
  5. CYCLOPENTOLATE HCL [Suspect]
     Dosage: 1 DRP, ONCE/SINGLE
     Route: 047
  6. PROPARACAINE HCL [Suspect]
     Indication: OPHTHALMOLOGICAL EXAMINATION
     Dosage: 1 DRP, ONCE/SINGLE
     Route: 047

REACTIONS (1)
  - Grand mal convulsion [Unknown]
